FAERS Safety Report 23221457 (Version 5)
Quarter: 2024Q1

REPORT INFORMATION
  Report Type: Spontaneous
  Country: US (occurrence: None)
  Receive Date: 20231123
  Receipt Date: 20240201
  Transmission Date: 20240410
  Serious: Yes (Other)
  Sender: FDA-Public Use
  Company Number: US-ROCHE-3461714

PATIENT
  Sex: Male

DRUGS (2)
  1. VABYSMO [Suspect]
     Active Substance: FARICIMAB\FARICIMAB-SVOA
     Indication: Diabetic retinal oedema
     Dosage: BILATERAL TREATMENT OF VABYSMO
     Route: 065
  2. LUCENTIS [Concomitant]
     Active Substance: RANIBIZUMAB

REACTIONS (9)
  - Blindness [Recovering/Resolving]
  - Uveitis [Unknown]
  - Keratic precipitates [Unknown]
  - Intraocular pressure increased [Unknown]
  - Glaucoma [Unknown]
  - Suspected transmission of an infectious agent via product [Unknown]
  - Cataract [Unknown]
  - Anterior chamber inflammation [Recovered/Resolved]
  - Vitritis [Recovered/Resolved]
